FAERS Safety Report 24645079 (Version 4)
Quarter: 2024Q4

REPORT INFORMATION
  Report Type: Report from Study
  Country: IN (occurrence: IN)
  Receive Date: 20241121
  Receipt Date: 20241231
  Transmission Date: 20250115
  Serious: Yes (Death)
  Sender: ROCHE
  Company Number: IN-ROCHE-10000089529

PATIENT
  Age: 88 Year
  Sex: Male

DRUGS (1)
  1. TECENTRIQ [Suspect]
     Active Substance: ATEZOLIZUMAB
     Indication: Hepatocellular carcinoma
     Dosage: FREQUENCY 1 INTERVAL 21 DAY
     Route: 042
     Dates: start: 20240725

REACTIONS (3)
  - Renal failure [Fatal]
  - Off label use [Unknown]
  - Blood creatinine increased [Unknown]
